FAERS Safety Report 5035415-4 (Version None)
Quarter: 2006Q2

REPORT INFORMATION
  Report Type: 
  Country: None (occurrence: None)
  Receive Date: 20060526
  Receipt Date: 20060207
  Transmission Date: 20061013
  Serious: No
  Sender: FDA-Public Use
  Company Number: FABR-11397

PATIENT
  Age: 46 Year
  Sex: Female
  Weight: 51.6 kg

DRUGS (7)
  1. FABRAZYME [Suspect]
     Indication: FABRY'S DISEASE
     Dosage: 55 MG Q2WKS IV
     Route: 042
     Dates: start: 20051123
  2. BENADRYL [Concomitant]
  3. ACETAMINOPHEN [Concomitant]
  4. LOW DOSE ASPIRIN [Concomitant]
  5. DIAZEPAM [Concomitant]
  6. LORATADINE [Concomitant]
  7. CALCIUM CARBONATE [Concomitant]

REACTIONS (2)
  - HYPERTENSION [None]
  - TRANSIENT ISCHAEMIC ATTACK [None]
